FAERS Safety Report 22098689 (Version 2)
Quarter: 2023Q2

REPORT INFORMATION
  Report Type: Spontaneous
  Country: DE (occurrence: DE)
  Receive Date: 20230315
  Receipt Date: 20230413
  Transmission Date: 20230722
  Serious: Yes (Other)
  Sender: FDA-Public Use
  Company Number: DE-Axellia-004645

PATIENT
  Age: 86 Year
  Sex: Female

DRUGS (12)
  1. DAPTOMYCIN [Suspect]
     Active Substance: DAPTOMYCIN
     Indication: Haematoma infection
     Dosage: REDUCED TO DFL 500MG AND 1 DFL 350MG EACH DUE TO IMPAIRED RENAL FUNCTION
     Route: 042
     Dates: start: 20230214, end: 20230224
  2. LEVOTHYROXINE [Concomitant]
     Active Substance: LEVOTHYROXINE
     Dosage: STRENGTH: 75MICROG, 1-0-0
  3. ESOMEPRAZOLE [Concomitant]
     Active Substance: ESOMEPRAZOLE
     Dosage: STRENGTH: 20MG, 1-0-0
  4. TORSEMIDE [Concomitant]
     Active Substance: TORSEMIDE
     Dosage: STRENGTH: 10MG, 1-0-0-1
  5. NALOXONE HYDROCHLORIDE\OXYCODONE HYDROCHLORIDE [Concomitant]
     Active Substance: NALOXONE HYDROCHLORIDE\OXYCODONE HYDROCHLORIDE
     Dosage: STRENGTH: 5/2.5, ?1-0-1
  6. METAMIZOLE [Concomitant]
     Active Substance: METAMIZOLE
     Dosage: 30-30-30
  7. PROTEIN [Concomitant]
     Active Substance: PROTEIN
     Dosage: 1MB, ?1-1-1
  8. Sab Simplex [Concomitant]
  9. MOVICOL [Concomitant]
     Active Substance: POLYETHYLENE GLYCOL 3350\POTASSIUM CHLORIDE\SODIUM BICARBONATE\SODIUM CHLORIDE
  10. HEPARIN [Concomitant]
     Active Substance: HEPARIN SODIUM
  11. ALBUTEROL [Concomitant]
     Active Substance: ALBUTEROL
  12. LINEZOLID [Concomitant]
     Active Substance: LINEZOLID
     Indication: Antibiotic therapy
     Route: 042

REACTIONS (2)
  - Acute kidney injury [Not Recovered/Not Resolved]
  - Tubulointerstitial nephritis [Not Recovered/Not Resolved]

NARRATIVE: CASE EVENT DATE: 20230215
